FAERS Safety Report 6370913-2 (Version None)
Quarter: 2009Q3

REPORT INFORMATION
  Report Type: 
  Country: None (occurrence: None)
  Receive Date: 20090923
  Receipt Date: 20070530
  Transmission Date: 20100115
  Serious: Yes (Other)
  Sender: FDA-Public Use
  Company Number: US-ASTRAZENECA-2006UW22633

PATIENT
  Age: 17215 Day
  Sex: Male
  Weight: 118.8 kg

DRUGS (20)
  1. SEROQUEL [Suspect]
     Indication: SLEEP DISORDER
     Dosage: 100 MG TO 150 MG
     Route: 048
     Dates: start: 20040702
  2. SEROQUEL [Suspect]
     Indication: DEPRESSION
     Dosage: 100 MG TO 150 MG
     Route: 048
     Dates: start: 20040702
  3. SEROQUEL [Suspect]
     Route: 048
     Dates: start: 20050101, end: 20060801
  4. SEROQUEL [Suspect]
     Route: 048
     Dates: start: 20050101, end: 20060801
  5. PSYCHIATRIC MEDICATION (UNSPECIFIED) [Concomitant]
     Route: 065
  6. VICODIN [Concomitant]
  7. BEXTRA [Concomitant]
  8. ZAROXOLYN [Concomitant]
  9. VASOTEC [Concomitant]
  10. PRILOSEC [Concomitant]
  11. VIOXX [Concomitant]
  12. ADVAIR HFA [Concomitant]
  13. AMITRIPTYLINE [Concomitant]
  14. ACTOS [Concomitant]
  15. GLIPIZIDE [Concomitant]
  16. METFORMIN HCL [Concomitant]
  17. WELLBUTRIN [Concomitant]
  18. MIRTAZAPINE [Concomitant]
  19. PERCOCET [Concomitant]
  20. FUROSEMIDE [Concomitant]

REACTIONS (2)
  - TARDIVE DYSKINESIA [None]
  - TYPE 2 DIABETES MELLITUS [None]
